FAERS Safety Report 8723456 (Version 2)
Quarter: 2012Q4

REPORT INFORMATION
  Report Type: 
  Country: DE (occurrence: DE)
  Receive Date: 20120814
  Receipt Date: 20121031
  Transmission Date: 20130627
  Serious: Yes (Hospitalization)
  Sender: FDA-Public Use
  Company Number: DE-ABBOTT-12P-062-0967481-00

PATIENT
  Sex: Female

DRUGS (2)
  1. HUMIRA 40 MG/0.8 ML PEN [Suspect]
     Indication: RHEUMATOID ARTHRITIS
     Route: 058
     Dates: start: 20090108, end: 20120801
  2. CONTRACEPTIVE [Concomitant]
     Indication: CONTRACEPTION
     Dosage: unk.

REACTIONS (1)
  - Myelitis transverse [Recovered/Resolved]
